FAERS Safety Report 8391253-6 (Version None)
Quarter: 2012Q2

REPORT INFORMATION
  Report Type: 
  Country: None (occurrence: None)
  Receive Date: 20120529
  Receipt Date: 20120523
  Transmission Date: 20120825
  Serious: Yes (Other)
  Sender: FDA-Public Use
  Company Number: US-AMGEN-USASP2012020357

PATIENT
  Age: 57 Year
  Sex: Female
  Weight: 57.596 kg

DRUGS (11)
  1. LEVOTHYROXINE SODIUM [Concomitant]
     Dosage: 112 MUG, UNK
     Route: 048
  2. VITAMIN D [Concomitant]
     Dosage: 1000 IU, UNK
     Route: 048
  3. ASPIRIN [Concomitant]
     Dosage: 81 MG, UNK
     Route: 048
  4. VITAMIN C [Concomitant]
     Dosage: 250 MG, UNK
     Route: 048
  5. CALCIUM [Concomitant]
     Dosage: 500 MG, UNK
     Route: 048
  6. ENBREL [Suspect]
     Indication: PSORIATIC ARTHROPATHY
     Dosage: 50 MG, 2 TIMES/WK
     Route: 058
  7. ENBREL [Suspect]
     Dosage: 50 MG, QWK
     Dates: start: 20120328
  8. CLOBETASOL PROPIONATE [Concomitant]
     Dosage: 0.05 %, UNK
  9. MULTI-VITAMIN [Concomitant]
     Dosage: UNK
     Route: 048
  10. STOOL SOFTENER [Concomitant]
     Dosage: 100 MG, UNK
     Route: 048
  11. LOVAZA [Concomitant]
     Dosage: 1000 MG, UNK
     Route: 048

REACTIONS (4)
  - NAUSEA [None]
  - LOSS OF CONSCIOUSNESS [None]
  - INJECTION SITE PAIN [None]
  - GASTROINTESTINAL VIRAL INFECTION [None]
